FAERS Safety Report 15690461 (Version 1)
Quarter: 2018Q4

REPORT INFORMATION
  Report Type: Spontaneous
  Country: US (occurrence: US)
  Receive Date: 20181205
  Receipt Date: 20181205
  Transmission Date: 20190205
  Serious: Yes (Hospitalization)
  Sender: FDA-Public Use
  Company Number: None

PATIENT
  Age: 70 Year
  Sex: Female
  Weight: 46.35 kg

DRUGS (4)
  1. GAMUNEX-C [Suspect]
     Active Substance: HUMAN IMMUNOGLOBULIN G
     Indication: POLYMYOSITIS
     Route: 042
     Dates: start: 20181104, end: 20181107
  2. ACETAMINOPHEN 480MG PO [Concomitant]
     Dates: start: 20181104, end: 20181107
  3. DIPHENHYDRAMINE 25MG PO [Concomitant]
     Dates: start: 20181104, end: 20181107
  4. SODIUM CHLORIDE 0.9% 3ML FLUSH [Concomitant]
     Dates: start: 20181104, end: 20181107

REACTIONS (1)
  - Thrombosis [None]

NARRATIVE: CASE EVENT DATE: 20181116
